FAERS Safety Report 21901596 (Version 3)
Quarter: 2023Q1

REPORT INFORMATION
  Report Type: Spontaneous
  Country: IT (occurrence: IT)
  Receive Date: 20230123
  Receipt Date: 20230222
  Transmission Date: 20230417
  Serious: Yes (Life-Threatening, Hospitalization, Other)
  Sender: FDA-Public Use
  Company Number: IT-MLMSERVICE-20230109-4030255-1

PATIENT
  Age: 82 Year
  Sex: Female

DRUGS (1)
  1. FLECAINIDE [Suspect]
     Active Substance: FLECAINIDE
     Indication: Atrial fibrillation
     Dosage: 150 MILLIGRAM, ONCE A DAY
     Route: 065

REACTIONS (9)
  - Blood lactic acid increased [Recovering/Resolving]
  - Toxicity to various agents [Recovering/Resolving]
  - Electrocardiogram QRS complex prolonged [Recovering/Resolving]
  - Bradycardia [Recovering/Resolving]
  - Hypotension [Recovering/Resolving]
  - Hyponatraemia [Recovering/Resolving]
  - Renal failure [Recovering/Resolving]
  - Atrioventricular block complete [Recovering/Resolving]
  - Syncope [Recovering/Resolving]
